FAERS Safety Report 9714619 (Version 1)
Quarter: 2013Q4

REPORT INFORMATION
  Report Type: Spontaneous
  Country: DK (occurrence: DK)
  Receive Date: 20131126
  Receipt Date: 20131126
  Transmission Date: 20140711
  Serious: Yes (Hospitalization)
  Sender: FDA-Public Use
  Company Number: DK-ASTRAZENECA-2013SE81195

PATIENT
  Age: 64 Year
  Sex: Male

DRUGS (5)
  1. BRILIQUE [Suspect]
     Indication: THROMBOSIS PROPHYLAXIS
     Route: 048
     Dates: start: 20130914, end: 20131012
  2. MAGNYL DAK [Concomitant]
  3. SELO-ZOK [Concomitant]
  4. CRESTOR [Concomitant]
  5. LOSARSTAD [Concomitant]

REACTIONS (2)
  - Paraesthesia [Recovered/Resolved]
  - Paraesthesia [Recovered/Resolved]
